FAERS Safety Report 15095824 (Version 2)
Quarter: 2018Q3

REPORT INFORMATION
  Report Type: Spontaneous
  Country: FR (occurrence: FR)
  Receive Date: 20180702
  Receipt Date: 20180821
  Transmission Date: 20181010
  Serious: Yes (Death)
  Sender: FDA-Public Use
  Company Number: FR-ROCHE-2147639

PATIENT
  Age: 55 Year
  Sex: Male
  Weight: 84 kg

DRUGS (2)
  1. AVASTIN [Suspect]
     Active Substance: BEVACIZUMAB
     Indication: RETINAL PIGMENT EPITHELIOPATHY
     Route: 065
     Dates: start: 2007
  2. EYLEA [Suspect]
     Active Substance: AFLIBERCEPT
     Indication: CHORIORETINOPATHY
     Route: 065
     Dates: start: 2014, end: 2014

REACTIONS (2)
  - Metastases to central nervous system [Fatal]
  - Adenocarcinoma of colon [Fatal]

NARRATIVE: CASE EVENT DATE: 201406
